FAERS Safety Report 8163707-9 (Version None)
Quarter: 2012Q1

REPORT INFORMATION
  Report Type: 
  Country: None (occurrence: None)
  Receive Date: 20120224
  Receipt Date: 20120221
  Transmission Date: 20120608
  Serious: No
  Sender: FDA-Public Use
  Company Number: US-PFIZER INC-2011308840

PATIENT
  Sex: Female
  Weight: 97.9 kg

DRUGS (3)
  1. OPTIVE [Suspect]
     Dosage: UNK
     Route: 047
  2. TOVIAZ [Suspect]
     Indication: URINARY INCONTINENCE
     Dosage: 4 MG, UNK
  3. TOVIAZ [Suspect]
     Indication: HYPERTONIC BLADDER
     Dosage: 20 MG, DAILY
     Route: 048
     Dates: start: 20111001, end: 20111201

REACTIONS (9)
  - BREATH ODOUR [None]
  - DRY EYE [None]
  - GINGIVAL BLEEDING [None]
  - CONSTIPATION [None]
  - VISION BLURRED [None]
  - BLEPHARITIS ALLERGIC [None]
  - DRY MOUTH [None]
  - DRUG INEFFECTIVE [None]
  - ORAL CANDIDIASIS [None]
